FAERS Safety Report 16064488 (Version 1)
Quarter: 2019Q1

REPORT INFORMATION
  Report Type: Spontaneous
  Country: FR (occurrence: FR)
  Receive Date: 20190312
  Receipt Date: 20190312
  Transmission Date: 20190418
  Serious: Yes (Hospitalization)
  Sender: FDA-Public Use
  Company Number: FR-MYLANLABS-2019M1022523

PATIENT
  Age: 28 Year
  Sex: Female

DRUGS (3)
  1. DAFALGAN CODEINE [Suspect]
     Active Substance: ACETAMINOPHEN\CODEINE PHOSPHATE
     Indication: PRODUCT USED FOR UNKNOWN INDICATION
     Dosage: UNK (8 ? 16 G)
     Route: 048
     Dates: start: 20180822, end: 20180822
  2. FLUOXETINE [Suspect]
     Active Substance: FLUOXETINE HYDROCHLORIDE
     Indication: PRODUCT USED FOR UNKNOWN INDICATION
     Dosage: 560 MILLIGRAM
     Route: 048
     Dates: start: 20180822, end: 20180822
  3. ALPRAZOLAM. [Suspect]
     Active Substance: ALPRAZOLAM
     Indication: PRODUCT USED FOR UNKNOWN INDICATION
     Dosage: 11.25 MILLIGRAM
     Route: 048
     Dates: start: 20180822, end: 20180822

REACTIONS (6)
  - Vomiting [Recovered/Resolved]
  - Prothrombin time prolonged [Recovered/Resolved]
  - Aspartate aminotransferase increased [Recovered/Resolved]
  - Toxicity to various agents [Recovered/Resolved]
  - Alanine aminotransferase increased [Recovered/Resolved]
  - Hypokalaemia [Recovered/Resolved]

NARRATIVE: CASE EVENT DATE: 20180822
